FAERS Safety Report 4678711-2 (Version None)
Quarter: 2005Q2

REPORT INFORMATION
  Report Type: 
  Country: None (occurrence: None)
  Receive Date: 20050531
  Receipt Date: 20050518
  Transmission Date: 20051028
  Serious: Yes (Hospitalization)
  Sender: FDA-Public Use
  Company Number: 2005AP000419

PATIENT
  Sex: Male
  Weight: 79.8331 kg

DRUGS (8)
  1. TICLOPIDINE HCL [Suspect]
     Indication: THROMBOSIS PROPHYLAXIS
     Dosage: 250 MG; BID; PO
     Route: 048
     Dates: start: 20050318, end: 20050425
  2. ASPIRIN [Concomitant]
  3. ISOSORBIDE DINITRATE [Concomitant]
  4. LIPITOR [Concomitant]
  5. TOPROL-XL [Concomitant]
  6. FOLIC ACID [Concomitant]
  7. PEPCID [Concomitant]
  8. IMDUR [Concomitant]

REACTIONS (10)
  - ARTHRALGIA [None]
  - ARTHRITIS [None]
  - CHILLS [None]
  - ERYTHEMA [None]
  - INSOMNIA [None]
  - JOINT STIFFNESS [None]
  - JOINT SWELLING [None]
  - PRURITUS [None]
  - PYREXIA [None]
  - SHOULDER PAIN [None]
